FAERS Safety Report 4394899-5 (Version None)
Quarter: 2004Q3

REPORT INFORMATION
  Report Type: 
  Country: None (occurrence: None)
  Receive Date: 20040706
  Receipt Date: 20040621
  Transmission Date: 20050211
  Serious: Yes (Hospitalization)
  Sender: FDA-Public Use
  Company Number: 2004028251

PATIENT
  Age: 5 Year
  Sex: Male
  Weight: 20 kg

DRUGS (10)
  1. ZITHROMAX [Suspect]
     Indication: PNEUMONIA MYCOPLASMAL
     Dosage: 200 MG (200 MG, 1 IN 1 D), ORAL
     Route: 048
     Dates: start: 20040311, end: 20040313
  2. TIPEPIDINE HIBENZATE (TIPEPIDINE HIBENZATE) [Concomitant]
  3. CYPROHEPTADINE HCL [Concomitant]
  4. CARBOCISTENE (CARBOCISTENE) [Concomitant]
  5. PROCATEROL HCL [Concomitant]
  6. ACETYLCYSTEINE [Concomitant]
  7. PARACETAMOL (PARACETAMOL) [Concomitant]
  8. HUSCODE (CHLORPHENAMINE MALEATE, DIHYDROCODEINE PHOSPHATE, METHYLPHEDR [Concomitant]
  9. TULOBUTEROL HYDROCHLORIDE (TULOBUTEROL HYDROCHLORIDE) [Concomitant]
  10. CLARITHROMYCIN [Concomitant]

REACTIONS (1)
  - INTERSTITIAL LUNG DISEASE [None]
